FAERS Safety Report 4682394-5 (Version None)
Quarter: 2005Q2

REPORT INFORMATION
  Report Type: 
  Country: None (occurrence: None)
  Receive Date: 20050606
  Receipt Date: 20050420
  Transmission Date: 20051028
  Serious: Yes (Hospitalization, Other)
  Sender: FDA-Public Use
  Company Number: PHBS2005JP05771

PATIENT
  Age: 33 Year
  Sex: Female

DRUGS (2)
  1. CYCLOSPORINE [Suspect]
     Indication: SYSTEMIC LUPUS ERYTHEMATOSUS
     Dosage: UNK, UNK
     Route: 065
     Dates: start: 20010601, end: 20011001
  2. PREDNISOLONE [Suspect]
     Indication: SYSTEMIC LUPUS ERYTHEMATOSUS
     Dates: start: 20011001

REACTIONS (5)
  - ACUTE ABDOMEN [None]
  - HAEMODIALYSIS [None]
  - LUPUS NEPHRITIS [None]
  - PANCREATIC CYST [None]
  - RENAL FAILURE [None]
